FAERS Safety Report 6655697-2 (Version None)
Quarter: 2010Q1

REPORT INFORMATION
  Report Type: 
  Country: None (occurrence: None)
  Receive Date: 20100326
  Receipt Date: 20100326
  Transmission Date: 20100710
  Serious: No
  Sender: FDA-Public Use
  Company Number: None

PATIENT
  Age: 72 Year
  Sex: Male
  Weight: 69.4003 kg

DRUGS (2)
  1. SIMVASTATIN [Suspect]
     Indication: BLOOD CHOLESTEROL INCREASED
     Dosage: 80 MG. 1 PER DAY 2009 9MOS DOSE WAS 20MG NOV - JAN 2010 INCREASED 40MG
     Dates: start: 20091101, end: 20100101
  2. SIMVASTATIN [Suspect]
     Indication: BLOOD CHOLESTEROL INCREASED
     Dosage: 80 MG. 1 PER DAY 2009 9MOS DOSE WAS 20MG NOV - JAN 2010 INCREASED 40MG
     Dates: start: 20090101

REACTIONS (4)
  - BACK PAIN [None]
  - HYPOAESTHESIA [None]
  - MUSCLE SPASMS [None]
  - MUSCULOSKELETAL PAIN [None]
